FAERS Safety Report 8113973-0 (Version None)
Quarter: 2012Q1

REPORT INFORMATION
  Report Type: 
  Country: None (occurrence: None)
  Receive Date: 20120203
  Receipt Date: 20120130
  Transmission Date: 20120608
  Serious: Yes (Other)
  Sender: FDA-Public Use
  Company Number: US-AMGEN-USASP2012000339

PATIENT
  Age: 31 Year
  Sex: Female

DRUGS (2)
  1. ENBREL [Suspect]
     Indication: PSORIASIS
     Dosage: 50 MG, QWK
     Route: 058
     Dates: start: 20060101
  2. HUMIRA [Concomitant]
     Dosage: UNK
     Dates: start: 20111101

REACTIONS (2)
  - ABORTION SPONTANEOUS [None]
  - MATERNAL DRUGS AFFECTING FOETUS [None]
